FAERS Safety Report 6496788-9 (Version None)
Quarter: 2009Q4

REPORT INFORMATION
  Report Type: 
  Country: None (occurrence: None)
  Receive Date: 20091125
  Receipt Date: 20090331
  Transmission Date: 20100525
  Serious: Yes (Other)
  Sender: FDA-Public Use
  Company Number: 2009BH004883

PATIENT
  Age: 66 Year
  Sex: Male

DRUGS (13)
  1. DIANEAL [Suspect]
     Indication: PERITONEAL DIALYSIS
     Dosage: 11.2 L; EVERY DAY; IP
     Route: 033
     Dates: start: 20080317
  2. DIANEAL [Suspect]
     Indication: PERITONEAL DIALYSIS
     Dosage: PRN; IP
     Route: 033
     Dates: start: 20080317
  3. ASPIRIN [Concomitant]
  4. DARVOCET [Concomitant]
  5. FOSRENOL [Concomitant]
  6. HECTOROL [Concomitant]
  7. HUMALOG [Concomitant]
  8. ISOSORBIDE [Concomitant]
  9. LANTUS [Concomitant]
  10. METOPROLOL [Concomitant]
  11. NEPHROVITE [Concomitant]
  12. ZANTAC [Concomitant]
  13. ZOCOR [Concomitant]

REACTIONS (1)
  - PERITONITIS BACTERIAL [None]
